FAERS Safety Report 7090837-5 (Version None)
Quarter: 2010Q4

REPORT INFORMATION
  Report Type: 
  Country: None (occurrence: None)
  Receive Date: 20101109
  Receipt Date: 20101103
  Transmission Date: 20110411
  Serious: Yes (Hospitalization)
  Sender: FDA-Public Use
  Company Number: US-AMGEN-USASP2010003390

PATIENT

DRUGS (1)
  1. ENBREL [Suspect]
     Indication: PSORIASIS
     Dates: start: 20101006

REACTIONS (5)
  - BLOOD POTASSIUM INCREASED [None]
  - DRY SKIN [None]
  - INFLAMMATION [None]
  - OEDEMA PERIPHERAL [None]
  - PRURITUS GENERALISED [None]
